FAERS Safety Report 7322997-2 (Version None)
Quarter: 2011Q1

REPORT INFORMATION
  Report Type: 
  Country: None (occurrence: None)
  Receive Date: 20110301
  Receipt Date: 20110218
  Transmission Date: 20110831
  Serious: Yes (Hospitalization, Other)
  Sender: FDA-Public Use
  Company Number: PHHY2010BR47970

PATIENT
  Sex: Male

DRUGS (1)
  1. EXELON [Suspect]
     Dosage: 27 MG/15CM^2
     Route: 062

REACTIONS (4)
  - PNEUMONIA [None]
  - CARDIAC ARREST [None]
  - INFECTION [None]
  - TONGUE PARALYSIS [None]
